FAERS Safety Report 18541591 (Version 1)
Quarter: 2020Q4

REPORT INFORMATION
  Report Type: Spontaneous
  Country: CA (occurrence: CA)
  Receive Date: 20201124
  Receipt Date: 20201124
  Transmission Date: 20210114
  Serious: Yes (Other)
  Sender: FDA-Public Use
  Company Number: CA-ASTRAZENECA-2020SF54169

PATIENT
  Age: 61 Year
  Sex: Male

DRUGS (1)
  1. LYNPARZA [Suspect]
     Active Substance: OLAPARIB
     Route: 048

REACTIONS (8)
  - Haematemesis [Unknown]
  - Off label use [Unknown]
  - Gastric disorder [Recovering/Resolving]
  - Blood test abnormal [Unknown]
  - Hepatic function abnormal [Unknown]
  - Metastases to liver [Unknown]
  - Jaundice [Unknown]
  - Biliary tract disorder [Unknown]
